FAERS Safety Report 25943615 (Version 2)
Quarter: 2025Q4

REPORT INFORMATION
  Report Type: Spontaneous
  Country: US (occurrence: US)
  Receive Date: 20251021
  Receipt Date: 20251021
  Transmission Date: 20260118
  Serious: Yes (Death, Other)
  Sender: ASTELLAS
  Company Number: US-ASTELLAS-2025-AER-058025

PATIENT
  Sex: Male

DRUGS (1)
  1. XTANDI [Suspect]
     Active Substance: ENZALUTAMIDE
     Indication: Product used for unknown indication
     Route: 065

REACTIONS (3)
  - Fall [Fatal]
  - Blindness [Unknown]
  - Posterior reversible encephalopathy syndrome [Unknown]
